FAERS Safety Report 6819624-7 (Version None)
Quarter: 2010Q3

REPORT INFORMATION
  Report Type: 
  Country: None (occurrence: None)
  Receive Date: 20100701
  Receipt Date: 20100402
  Transmission Date: 20110219
  Serious: No
  Sender: FDA-Public Use
  Company Number: US-TEVA-227857USA

PATIENT
  Age: 67 Year
  Sex: Male

DRUGS (5)
  1. AZILECT [Suspect]
     Indication: PARKINSON'S DISEASE
     Route: 048
     Dates: start: 20090111, end: 20100201
  2. PANADEINE CO [Concomitant]
     Indication: BACK PAIN
     Route: 048
  3. NSAID'S [Concomitant]
     Indication: BACK PAIN
     Route: 048
  4. ROPINIROLE HYDROCHLORIDE [Concomitant]
  5. CLONAZEPAM [Concomitant]
     Indication: SLEEP DISORDER
     Dosage: NIGHTTIME

REACTIONS (2)
  - BLOOD AMYLASE INCREASED [None]
  - LIPASE INCREASED [None]
